FAERS Safety Report 4776679-1 (Version None)
Quarter: 2005Q3

REPORT INFORMATION
  Report Type: 
  Country: None (occurrence: None)
  Receive Date: 20050914
  Receipt Date: 20040915
  Transmission Date: 20060218
  Serious: Yes (Hospitalization)
  Sender: FDA-Public Use
  Company Number: 163-20785-04090362

PATIENT
  Age: 86 Year
  Sex: Male

DRUGS (4)
  1. THALOMID [Suspect]
     Indication: MYELODYSPLASTIC SYNDROME
     Dosage: 200 MG, DAILY, ORAL
     Route: 048
     Dates: start: 20040812, end: 20040101
  2. PREDNISONE [Concomitant]
  3. ERYTHROPOIETIN (ERYTHROPOIETIN) [Concomitant]
  4. BLOOD TRANSFUSION (BLOOD TRANSFUSION, AUXILIARY PRODUCTS) [Concomitant]

REACTIONS (1)
  - PNEUMONIA [None]
